FAERS Safety Report 7510944-X (Version None)
Quarter: 2011Q2

REPORT INFORMATION
  Report Type: 
  Country: None (occurrence: None)
  Receive Date: 20110531
  Receipt Date: 20110525
  Transmission Date: 20111010
  Serious: Yes (Hospitalization, Other)
  Sender: FDA-Public Use
  Company Number: FR-BRISTOL-MYERS SQUIBB COMPANY-15740749

PATIENT
  Age: 54 Year
  Sex: Male

DRUGS (3)
  1. FLUOROURACIL [Suspect]
     Indication: HEAD AND NECK CANCER
     Dosage: RECENT INF:5AUG10,OVER 4 DAYS EVERY 21DAYS CYCLE,2  CYCLES 8 ADMINISTRATION B/W12JUL10-5AUG10.
     Route: 042
     Dates: start: 20100712
  2. ERBITUX [Suspect]
     Indication: HEAD AND NECK CANCER
     Dosage: RECENT INF:23AUG10; 749.6MG/D ON 05JUL2010
     Route: 042
     Dates: start: 20100705
  3. CARBOPLATIN [Suspect]
     Indication: HEAD AND NECK CANCER
     Dosage: RECENT INF:5AUG10,OVER 4 DAYS EVERY 21DAYS CYCLE,2  CYCLES 8 ADMINISTRATION
     Route: 042
     Dates: start: 20100712

REACTIONS (2)
  - MUCOSAL INFLAMMATION [None]
  - DERMATITIS [None]
